FAERS Safety Report 22114580 (Version 2)
Quarter: 2023Q1

REPORT INFORMATION
  Report Type: Spontaneous
  Country: JP (occurrence: JP)
  Receive Date: 20230320
  Receipt Date: 20230330
  Transmission Date: 20230418
  Serious: Yes (Other)
  Sender: FDA-Public Use
  Company Number: JP-TAKEDA-2023TJP003566

PATIENT
  Age: 12 Year
  Sex: Female
  Weight: 24.6 kg

DRUGS (7)
  1. ENTYVIO [Suspect]
     Active Substance: VEDOLIZUMAB
     Indication: Acute graft versus host disease
     Dosage: 6 MILLIGRAM/KILOGRAM
     Route: 065
  2. RUXOLITINIB PHOSPHATE [Concomitant]
     Active Substance: RUXOLITINIB PHOSPHATE
     Indication: Acute graft versus host disease
     Dosage: 5 MILLIGRAM
  3. TACROLIMUS [Concomitant]
     Active Substance: TACROLIMUS
     Indication: Acute graft versus host disease
     Dosage: UNK
     Route: 048
  4. TACROLIMUS [Concomitant]
     Active Substance: TACROLIMUS
     Dosage: UNK
     Route: 042
  5. PREDNISOLONE [Concomitant]
     Active Substance: PREDNISOLONE
     Indication: Acute graft versus host disease
     Dosage: 1 MILLIGRAM/KILOGRAM
     Route: 065
  6. PREDNISOLONE [Concomitant]
     Active Substance: PREDNISOLONE
     Dosage: 2 MILLIGRAM/KILOGRAM
     Route: 065
  7. DASATINIB [Concomitant]
     Active Substance: DASATINIB
     Indication: Acute myeloid leukaemia
     Dosage: UNK
     Route: 065

REACTIONS (2)
  - Pneumonia staphylococcal [Recovering/Resolving]
  - Off label use [Unknown]

NARRATIVE: CASE EVENT DATE: 20210409
